FAERS Safety Report 18590671 (Version 1)
Quarter: 2020Q4

REPORT INFORMATION
  Report Type: Spontaneous
  Country: US (occurrence: US)
  Receive Date: 20201208
  Receipt Date: 20201208
  Transmission Date: 20210114
  Serious: Yes (Other)
  Sender: FDA-Public Use
  Company Number: None

PATIENT
  Age: 38 Year
  Sex: Female
  Weight: 72.9 kg

DRUGS (1)
  1. KEFLEX [Suspect]
     Active Substance: CEPHALEXIN
     Route: 048
     Dates: start: 20201205, end: 20201206

REACTIONS (1)
  - Urticaria [None]

NARRATIVE: CASE EVENT DATE: 20201206
